FAERS Safety Report 20544738 (Version 1)
Quarter: 2022Q1

REPORT INFORMATION
  Report Type: Spontaneous
  Country: CN (occurrence: CN)
  Receive Date: 20220303
  Receipt Date: 20220303
  Transmission Date: 20220423
  Serious: Yes (Hospitalization, Other)
  Sender: FDA-Public Use
  Company Number: CN-BAXTER-2022BAX004062

PATIENT
  Age: 40 Year
  Sex: Female
  Weight: 54 kg

DRUGS (6)
  1. CYCLOPHOSPHAMIDE [Suspect]
     Active Substance: CYCLOPHOSPHAMIDE
     Indication: Breast cancer female
     Dosage: 1 ST CHEMOTHERAPY; PRIOR ADVERSE DRUG
     Route: 041
     Dates: start: 20211227
  2. CYCLOPHOSPHAMIDE [Suspect]
     Active Substance: CYCLOPHOSPHAMIDE
     Dosage: 2ND CHEMOTHERAPY
     Route: 041
     Dates: start: 20220118, end: 20220118
  3. CYCLOPHOSPHAMIDE [Suspect]
     Active Substance: CYCLOPHOSPHAMIDE
     Dosage: DOSE REINTRODUCED
     Route: 041
  4. PACLITAXEL [Suspect]
     Active Substance: PACLITAXEL
     Indication: Breast cancer female
     Dosage: 1ST CHEMOTHERAPY; PRIOR DRUG
     Route: 041
     Dates: start: 20211227
  5. PACLITAXEL [Suspect]
     Active Substance: PACLITAXEL
     Dosage: 1ST CHEMOTHERAPY
     Route: 041
     Dates: start: 20220118, end: 20220118
  6. PACLITAXEL [Suspect]
     Active Substance: PACLITAXEL
     Dosage: DOSE REINTRODUCED
     Route: 041

REACTIONS (15)
  - Peripheral nerve injury [Recovering/Resolving]
  - Peripheral nerve injury [Recovered/Resolved]
  - Myelosuppression [Recovering/Resolving]
  - White blood cell count decreased [Unknown]
  - Nausea [Recovering/Resolving]
  - Vomiting [Recovering/Resolving]
  - Feeding disorder [Unknown]
  - Abdominal distension [Unknown]
  - Epigastric discomfort [Unknown]
  - Poor quality sleep [Unknown]
  - Discomfort [Unknown]
  - Headache [Unknown]
  - Fatigue [Unknown]
  - Vomiting [Recovered/Resolved]
  - Discomfort [Unknown]

NARRATIVE: CASE EVENT DATE: 20220118
